FAERS Safety Report 24110506 (Version 1)
Quarter: 2024Q3

REPORT INFORMATION
  Report Type: Spontaneous
  Country: RU (occurrence: RU)
  Receive Date: 20240718
  Receipt Date: 20240718
  Transmission Date: 20241017
  Serious: Yes (Other)
  Sender: EMD SERONO INC
  Company Number: RU-Merck Healthcare KGaA-2024037214

PATIENT
  Age: 59 Year
  Sex: Male

DRUGS (2)
  1. BAVENCIO [Suspect]
     Active Substance: AVELUMAB
     Indication: Transitional cell carcinoma
     Route: 042
     Dates: start: 202309
  2. SAMARIUM SM-153 [Suspect]
     Active Substance: SAMARIUM SM-153
     Indication: Product used for unknown indication

REACTIONS (2)
  - Thrombocytopenia [Unknown]
  - Leukopenia [Unknown]
